FAERS Safety Report 17437669 (Version 1)
Quarter: 2020Q1

REPORT INFORMATION
  Report Type: Spontaneous
  Country: IT (occurrence: IT)
  Receive Date: 20200219
  Receipt Date: 20200219
  Transmission Date: 20200409
  Serious: Yes (Death)
  Sender: FDA-Public Use
  Company Number: IT-CELLTRION INC.-2020IT019525

PATIENT

DRUGS (12)
  1. HYDROXYDAUNORUBICIN [Concomitant]
     Active Substance: DOXORUBICIN
  2. ACETYLSALICYLIC ACID [Concomitant]
     Active Substance: ASPIRIN
  3. VANCOMYCIN [Concomitant]
     Active Substance: VANCOMYCIN
     Route: 065
  4. DEXAMETHASONE. [Suspect]
     Active Substance: DEXAMETHASONE
     Indication: PLASMABLASTIC LYMPHOMA
     Route: 065
  5. CISPLATIN. [Suspect]
     Active Substance: CISPLATIN
     Indication: PLASMABLASTIC LYMPHOMA
     Route: 065
  6. CYCLOPHOSPHAMIDE. [Concomitant]
     Active Substance: CYCLOPHOSPHAMIDE
  7. ONCOVIN [Concomitant]
     Active Substance: VINCRISTINE SULFATE
  8. CLOPIDOGREL HYDROGEN SULFATE [Concomitant]
     Active Substance: CLOPIDOGREL BISULFATE
     Dosage: UNK, DAILY
     Route: 065
  9. RAPAMYCIN [Concomitant]
     Active Substance: SIROLIMUS
  10. CYTOSINE ARABINOSIDE [Suspect]
     Active Substance: CYTARABINE
     Indication: PLASMABLASTIC LYMPHOMA
     Route: 065
  11. PREDNISONE. [Concomitant]
     Active Substance: PREDNISONE
  12. RITUXIMAB (UNKNOWN) [Suspect]
     Active Substance: RITUXIMAB
     Indication: PLASMABLASTIC LYMPHOMA
     Route: 065

REACTIONS (3)
  - Pneumonia [Fatal]
  - Septic shock [Fatal]
  - Product use in unapproved indication [Unknown]
